FAERS Safety Report 5239066-8 (Version None)
Quarter: 2007Q1

REPORT INFORMATION
  Report Type: 
  Country: None (occurrence: None)
  Receive Date: 20061208
  Receipt Date: 20050503
  Transmission Date: 20070707
  Serious: Yes (Other)
  Sender: FDA-Public Use
  Company Number: 2005UW06834

PATIENT
  Age: 81 Year
  Sex: Female
  Weight: 72.574 kg

DRUGS (6)
  1. CRESTOR [Suspect]
     Indication: BLOOD CHOLESTEROL INCREASED
     Dosage: 10 MG PO
     Route: 048
  2. ECOTRIN [Concomitant]
  3. PRILOSEC [Concomitant]
  4. PACERONE [Concomitant]
  5. MAXZIDE [Concomitant]
  6. THEOPHYLLINE [Concomitant]

REACTIONS (3)
  - EYE PRURITUS [None]
  - LACRIMATION INCREASED [None]
  - OCULAR HYPERAEMIA [None]
